FAERS Safety Report 14076444 (Version 2)
Quarter: 2017Q4

REPORT INFORMATION
  Report Type: Spontaneous
  Country: US (occurrence: US)
  Receive Date: 20171011
  Receipt Date: 20171121
  Transmission Date: 20180321
  Serious: No
  Sender: FDA-Public Use
  Company Number: US-ELI_LILLY_AND_COMPANY-US201709007722

PATIENT
  Age: 32 Year
  Sex: Female
  Weight: 113.3 kg

DRUGS (1)
  1. BASAGLAR [Suspect]
     Active Substance: INSULIN GLARGINE
     Indication: TYPE 2 DIABETES MELLITUS
     Dosage: 83 U, DAILY (QHS)
     Route: 058
     Dates: end: 20171002

REACTIONS (1)
  - Maternal exposure during pregnancy [Unknown]
